FAERS Safety Report 4961242-X (Version None)
Quarter: 2006Q2

REPORT INFORMATION
  Report Type: 
  Country: None (occurrence: None)
  Receive Date: 20060403
  Receipt Date: 20060324
  Transmission Date: 20061013
  Serious: Yes (Hospitalization)
  Sender: FDA-Public Use
  Company Number: DE-ABBOTT-06P-062-0329057-00

PATIENT
  Sex: Female
  Weight: 60 kg

DRUGS (2)
  1. ERGENYL ^SANOFI WINTHROP^ [Suspect]
     Indication: DRUG USE FOR UNKNOWN INDICATION
     Route: 048
     Dates: start: 20060101, end: 20060101
  2. CONCENTRATED SODIUM CHLORIDE WATER [Suspect]
     Indication: VOMITING
     Dates: start: 20060101, end: 20060101

REACTIONS (3)
  - ACCIDENTAL EXPOSURE [None]
  - ACCIDENTAL OVERDOSE [None]
  - HYPERNATRAEMIA [None]
